FAERS Safety Report 20155062 (Version 1)
Quarter: 2021Q4

REPORT INFORMATION
  Report Type: Report from Study
  Country: US (occurrence: US)
  Receive Date: 20211207
  Receipt Date: 20211207
  Transmission Date: 20220303
  Serious: Yes (Death)
  Sender: FDA-Public Use
  Company Number: US-MYLANLABS-2021M1089560

PATIENT
  Age: 48 Year
  Sex: Male

DRUGS (2)
  1. FULPHILA [Suspect]
     Active Substance: PEGFILGRASTIM-JMDB
     Indication: Neoplasm malignant
     Dosage: UNK
  2. FULPHILA [Suspect]
     Active Substance: PEGFILGRASTIM-JMDB
     Indication: Agranulocytosis

REACTIONS (1)
  - Death [Fatal]

NARRATIVE: CASE EVENT DATE: 20211128
